FAERS Safety Report 14669558 (Version 1)
Quarter: 2018Q1

REPORT INFORMATION
  Report Type: Spontaneous
  Country: US (occurrence: US)
  Receive Date: 20180321
  Receipt Date: 20180321
  Transmission Date: 20180509
  Serious: No
  Sender: FDA-Public Use
  Company Number: None

PATIENT
  Age: 58 Year
  Sex: Male

DRUGS (1)
  1. TACROLIMUS CAP 1 MG ACCORD HEALTHCARE [Suspect]
     Active Substance: TACROLIMUS

REACTIONS (4)
  - Peripheral swelling [None]
  - Pain in extremity [None]
  - Erythema [None]
  - Localised infection [None]

NARRATIVE: CASE EVENT DATE: 20180320
